FAERS Safety Report 8389608-9 (Version None)
Quarter: 2012Q2

REPORT INFORMATION
  Report Type: 
  Country: None (occurrence: None)
  Receive Date: 20120528
  Receipt Date: 20120521
  Transmission Date: 20120825
  Serious: Yes (Other)
  Sender: FDA-Public Use
  Company Number: DE-ROCHE-1037999

PATIENT

DRUGS (3)
  1. SULFUR HEXAFLUORIDE GAS [Suspect]
     Indication: AGE-RELATED MACULAR DEGENERATION
  2. ALTEPLASE [Suspect]
     Indication: AGE-RELATED MACULAR DEGENERATION
  3. AVASTIN [Suspect]
     Indication: AGE-RELATED MACULAR DEGENERATION

REACTIONS (1)
  - RETINAL DETACHMENT [None]
